FAERS Safety Report 8265213-X (Version None)
Quarter: 2012Q2

REPORT INFORMATION
  Report Type: 
  Country: None (occurrence: None)
  Receive Date: 20120406
  Receipt Date: 20120402
  Transmission Date: 20120825
  Serious: Yes (Life-Threatening, Other)
  Sender: FDA-Public Use
  Company Number: IT-PFIZER INC-2012083913

PATIENT
  Age: 62 Year
  Sex: Male

DRUGS (4)
  1. METHYLPREDNISOLONE HEMISUCCINATE [Concomitant]
     Route: 042
  2. THEOPHYLLINE [Concomitant]
     Route: 042
  3. PIPERACILLIN AND TAZOBACTAM [Suspect]
     Indication: PNEUMONIA
     Dosage: 4.5 GRAMS
     Route: 042
  4. FUROSEMIDE [Concomitant]
     Route: 042

REACTIONS (1)
  - KOUNIS SYNDROME [None]
